FAERS Safety Report 21921110 (Version 1)
Quarter: 2023Q1

REPORT INFORMATION
  Report Type: Spontaneous
  Country: US (occurrence: None)
  Receive Date: 20230127
  Receipt Date: 20230127
  Transmission Date: 20230418
  Serious: Yes (Life-Threatening, Disabling, Other)
  Sender: FDA-Public Use
  Company Number: None

PATIENT
  Age: 59 Year
  Sex: Female
  Weight: 150.3 kg

DRUGS (26)
  1. GABAPENTIN [Suspect]
     Active Substance: GABAPENTIN
     Indication: Hypovitaminosis
     Dates: start: 20200101, end: 20221205
  2. GABAPENTIN [Suspect]
     Active Substance: GABAPENTIN
     Indication: Neuralgia
  3. GABAPENTIN [Suspect]
     Active Substance: GABAPENTIN
     Indication: Asthma
  4. GABAPENTIN [Suspect]
     Active Substance: GABAPENTIN
     Indication: Neuralgia
  5. GABAPENTIN [Suspect]
     Active Substance: GABAPENTIN
     Indication: Asthma
  6. CETIRIZINE HYDROCHLORIDE TABLETS, 10 MG [Suspect]
     Active Substance: CETIRIZINE HYDROCHLORIDE
     Indication: Asthma
     Dosage: OTHER QUANTITY : 30 TABLET(S);?FREQUENCY : DAILY;?
     Route: 048
     Dates: start: 20211101, end: 20221205
  7. MINERALS\VITAMINS [Suspect]
     Active Substance: MINERALS\VITAMINS
  8. OYSTER SHELL CALCIUM WITH VITAMIN D [Suspect]
     Active Substance: CALCIUM\CHOLECALCIFEROL
  9. VITAMINS WITH MINERALS [Suspect]
     Active Substance: MINERALS\VITAMINS
  10. VITAMIN B12 [Suspect]
     Active Substance: CYANOCOBALAMIN
  11. VITAMIN D [Suspect]
     Active Substance: VITAMIN D NOS
  12. VITAMIN C [Suspect]
     Active Substance: ASCORBIC ACID
  13. MONTELUKAST [Suspect]
     Active Substance: MONTELUKAST SODIUM
  14. CYANOCOBALAMIN [Concomitant]
     Active Substance: CYANOCOBALAMIN
  15. ARMODAFINIL [Concomitant]
     Active Substance: ARMODAFINIL
  16. IRON [Concomitant]
     Active Substance: IRON
  17. ZYRTEC [Concomitant]
     Active Substance: CETIRIZINE HYDROCHLORIDE
  18. MIRABEGRON [Concomitant]
     Active Substance: MIRABEGRON
  19. BREO ELLIPA [Concomitant]
  20. SULFAMETHOXAZOLE-TRIMETHOPRIM [Concomitant]
  21. CHOLECALCIFEROL [Concomitant]
  22. CALCIUM\CHOLECALCIFEROL [Concomitant]
     Active Substance: CALCIUM\CHOLECALCIFEROL
  23. ASCORBIC ACID [Concomitant]
     Active Substance: ASCORBIC ACID
  24. VOLTRAN [Concomitant]
  25. IRON [Concomitant]
     Active Substance: IRON
  26. TRAMADOL [Concomitant]
     Active Substance: TRAMADOL

REACTIONS (1)
  - Drug ineffective [None]

NARRATIVE: CASE EVENT DATE: 20220101
